FAERS Safety Report 18202788 (Version 1)
Quarter: 2020Q3

REPORT INFORMATION
  Report Type: Spontaneous
  Country: FR (occurrence: FR)
  Receive Date: 20200827
  Receipt Date: 20200827
  Transmission Date: 20201103
  Serious: Yes (Hospitalization)
  Sender: FDA-Public Use
  Company Number: FR-PFIZER INC-2020329246

PATIENT
  Age: 74 Year
  Sex: Female
  Weight: 68 kg

DRUGS (3)
  1. XELJANZ [Suspect]
     Active Substance: TOFACITINIB CITRATE
     Indication: RHEUMATOID ARTHRITIS
     Dosage: 5 MG, 1X/DAY (EVENING)
     Dates: start: 202002, end: 20200624
  2. CORTISONE [Concomitant]
     Active Substance: CORTISONE
     Indication: RHEUMATOID ARTHRITIS
  3. XELJANZ [Suspect]
     Active Substance: TOFACITINIB CITRATE
     Dosage: 5 MG, 1X/DAY (EVENING)
     Dates: end: 20200824

REACTIONS (9)
  - Gait disturbance [Unknown]
  - Fatigue [Unknown]
  - Dysphagia [Recovered/Resolved]
  - Fall [Unknown]
  - Abdominal distension [Unknown]
  - Weight increased [Unknown]
  - Constipation [Recovered/Resolved]
  - Headache [Unknown]
  - Abdominal pain upper [Unknown]
